FAERS Safety Report 20895458 (Version 1)
Quarter: 2022Q2

REPORT INFORMATION
  Report Type: Report from Study
  Country: CA (occurrence: CA)
  Receive Date: 20220531
  Receipt Date: 20220531
  Transmission Date: 20220721
  Serious: Yes (Hospitalization, Other)
  Sender: FDA-Public Use
  Company Number: CA-ABBVIE-22K-028-4416321-00

PATIENT
  Sex: Female

DRUGS (1)
  1. HUMIRA [Suspect]
     Active Substance: ADALIMUMAB
     Indication: Psoriatic arthropathy
     Route: 058

REACTIONS (7)
  - Gastric ulcer [Recovering/Resolving]
  - Transfusion [Unknown]
  - Cataract [Unknown]
  - Unevaluable event [Recovering/Resolving]
  - Accident [Unknown]
  - Hyponatraemic syndrome [Unknown]
  - Colitis [Unknown]

NARRATIVE: CASE EVENT DATE: 20210101
